FAERS Safety Report 11167714 (Version 1)
Quarter: 2015Q2

REPORT INFORMATION
  Report Type: Spontaneous
  Country: FR (occurrence: FR)
  Receive Date: 20150605
  Receipt Date: 20150605
  Transmission Date: 20150821
  Serious: Yes (Hospitalization)
  Sender: FDA-Public Use
  Company Number: FR-ABBVIE-15P-056-1401141-00

PATIENT
  Age: 56 Year
  Sex: Male

DRUGS (3)
  1. TRUVADA [Suspect]
     Active Substance: EMTRICITABINE\TENOFOVIR DISOPROXIL FUMARATE
     Indication: PRODUCT USED FOR UNKNOWN INDICATION
     Route: 048
     Dates: start: 20101201, end: 20150204
  2. REYATAZ [Suspect]
     Active Substance: ATAZANAVIR SULFATE
     Indication: PRODUCT USED FOR UNKNOWN INDICATION
     Route: 048
     Dates: start: 20101201, end: 20150204
  3. NORVIR [Suspect]
     Active Substance: RITONAVIR
     Indication: PRODUCT USED FOR UNKNOWN INDICATION
     Route: 048
     Dates: start: 20101201, end: 20150204

REACTIONS (14)
  - Dyspepsia [Unknown]
  - Dysphagia [Unknown]
  - Blood calcium decreased [Unknown]
  - Blood potassium decreased [Unknown]
  - Renal failure [Unknown]
  - Renal tubular disorder [Unknown]
  - Abdominal pain upper [Unknown]
  - Mucosal dryness [Unknown]
  - Hypotension [Unknown]
  - Jaundice [Unknown]
  - Aplastic anaemia [Unknown]
  - Blood bicarbonate decreased [Unknown]
  - Weight decreased [Unknown]
  - Proteinuria [Unknown]

NARRATIVE: CASE EVENT DATE: 201412
